FAERS Safety Report 10881832 (Version 1)
Quarter: 2015Q1

REPORT INFORMATION
  Report Type: Spontaneous
  Country: US (occurrence: None)
  Receive Date: 20150227
  Receipt Date: 20150227
  Transmission Date: 20150721
  Serious: Yes (Life-Threatening, Hospitalization, Disabling, Other)
  Sender: FDA-Public Use
  Company Number: None

PATIENT
  Sex: Female
  Weight: 99.79 kg

DRUGS (22)
  1. ATENOLOL. [Concomitant]
     Active Substance: ATENOLOL
  2. TRAMADOL [Concomitant]
     Active Substance: TRAMADOL
  3. DARVOCET N100 [Suspect]
     Active Substance: ACETAMINOPHEN\PROPOXYPHENE NAPSYLATE
     Indication: SCOLIOSIS
  4. CLOMAZEPAM [Concomitant]
  5. ACETAMINOPHEN. [Concomitant]
     Active Substance: ACETAMINOPHEN
  6. TOPAMAX [Suspect]
     Active Substance: TOPIRAMATE
     Indication: PROPHYLAXIS
  7. VALACYCLOVIR [Concomitant]
     Active Substance: VALACYCLOVIR HYDROCHLORIDE
  8. AZITHROMYCIN [Concomitant]
     Active Substance: AZITHROMYCIN ANHYDROUS
  9. GABAPENTIN. [Concomitant]
     Active Substance: GABAPENTIN
  10. ZOLPIDEM TARTRATE. [Concomitant]
     Active Substance: ZOLPIDEM TARTRATE
  11. OMEPRAZOLE (PRILOSEC) [Concomitant]
  12. CYCLOBENZAPINE [Concomitant]
  13. LOPPRESSOR [Concomitant]
  14. TRIGASAMINE [Concomitant]
  15. OXYCODONE [Concomitant]
     Active Substance: OXYCODONE
  16. OSTEO BI FLEX [Concomitant]
  17. VITAMIN E [Suspect]
     Active Substance: .ALPHA.-TOCOPHEROL
  18. TOPIRAMATE. [Concomitant]
     Active Substance: TOPIRAMATE
  19. OSCAL ULTRA CALCIUM SUPP [Concomitant]
  20. TOPAMAX [Suspect]
     Active Substance: TOPIRAMATE
     Indication: HEADACHE
  21. IMITREX [Concomitant]
     Active Substance: SUMATRIPTAN\SUMATRIPTAN SUCCINATE
  22. WOMEN VITAMIN ONE A DAY [Concomitant]

REACTIONS (2)
  - Weight decreased [None]
  - Drug ineffective [None]
